FAERS Safety Report 4783006-2 (Version None)
Quarter: 2005Q3

REPORT INFORMATION
  Report Type: 
  Country: None (occurrence: None)
  Receive Date: 20050929
  Receipt Date: 20050914
  Transmission Date: 20060218
  Serious: Yes (Death)
  Sender: FDA-Public Use
  Company Number: 2005AP04898

PATIENT
  Age: 648 Month
  Sex: Female

DRUGS (13)
  1. CRESTOR [Suspect]
     Indication: HYPERLIPIDAEMIA
     Route: 048
     Dates: start: 20050603
  2. ASPIRIN [Concomitant]
     Route: 048
  3. NORVASC [Concomitant]
     Route: 048
  4. ALDACTONE [Concomitant]
     Route: 048
  5. DIART [Concomitant]
     Route: 048
  6. LANIRAPID [Concomitant]
     Route: 048
  7. PANALDINE [Concomitant]
     Route: 048
  8. TAKEPRON [Concomitant]
     Route: 048
  9. SIGMART [Concomitant]
     Route: 048
  10. VASOLATOR [Concomitant]
  11. AMARYL [Concomitant]
     Route: 048
  12. DIOVAN [Concomitant]
     Route: 048
  13. BASEN OD [Concomitant]
     Route: 048

REACTIONS (2)
  - MYOCARDIAL INFARCTION [None]
  - SUDDEN DEATH [None]
